FAERS Safety Report 6590786-2 (Version None)
Quarter: 2010Q1

REPORT INFORMATION
  Report Type: 
  Country: None (occurrence: None)
  Receive Date: 20100219
  Receipt Date: 20100208
  Transmission Date: 20100710
  Serious: Yes (Other)
  Sender: FDA-Public Use
  Company Number: GB-BAXTER-2010BH002905

PATIENT
  Age: 56 Year
  Sex: Female

DRUGS (4)
  1. CYCLOPHOSPHAMIDE [Suspect]
     Indication: COLON CANCER
     Route: 042
     Dates: start: 20091117, end: 20091118
  2. MFEZ [Suspect]
     Indication: COLON CANCER
     Route: 042
     Dates: start: 20091124, end: 20091124
  3. FLUDARABINE [Suspect]
     Indication: COLON CANCER
     Route: 042
     Dates: start: 20091119, end: 20091123
  4. INTERLEUKIN-2 [Suspect]
     Indication: COLON CANCER
     Route: 040
     Dates: start: 20091124, end: 20091126

REACTIONS (3)
  - DYSPNOEA [None]
  - OXYGEN SATURATION DECREASED [None]
  - RESPIRATORY RATE INCREASED [None]
